FAERS Safety Report 24889648 (Version 1)
Quarter: 2025Q1

REPORT INFORMATION
  Report Type: Spontaneous
  Country: CA (occurrence: CA)
  Receive Date: 20250127
  Receipt Date: 20250127
  Transmission Date: 20250408
  Serious: Yes (Life-Threatening)
  Sender: MYLAN
  Company Number: CA-MYLANLABS-2025M1006897

PATIENT
  Age: 77 Year
  Sex: Female

DRUGS (4)
  1. GABAPENTIN [Suspect]
     Active Substance: GABAPENTIN
     Indication: Trigeminal neuralgia
     Dosage: 5 MILLIGRAM, BID ( 2 EVERY 1 DAYS)
     Route: 065
  2. GABAPENTIN [Suspect]
     Active Substance: GABAPENTIN
     Dosage: 20 MILLIGRAM, QD (1 EVERY 1 DAYS)
     Route: 065
  3. BACLOFEN [Suspect]
     Active Substance: BACLOFEN
     Indication: Product used for unknown indication
     Dosage: 20 MILLIGRAM, QD (1 EVERY 1 DAYS)
     Route: 048
  4. BACLOFEN [Suspect]
     Active Substance: BACLOFEN
     Route: 048

REACTIONS (5)
  - Acute respiratory failure [Recovered/Resolved]
  - Respiratory depression [Recovered/Resolved]
  - Acute kidney injury [Recovered/Resolved]
  - Altered state of consciousness [Recovered/Resolved]
  - Overdose [Recovered/Resolved]
